FAERS Safety Report 6355129-8 (Version None)
Quarter: 2009Q3

REPORT INFORMATION
  Report Type: 
  Country: None (occurrence: None)
  Receive Date: 20090914
  Receipt Date: 20090831
  Transmission Date: 20100115
  Serious: Yes (Other)
  Sender: FDA-Public Use
  Company Number: TR-MYLANLABS-2009S1015417

PATIENT
  Sex: Male

DRUGS (4)
  1. CLOZAPINE [Suspect]
     Indication: SCHIZOPHRENIA
     Dosage: INITIAL DOSAGE NOT STATED
  2. CLOZAPINE [Suspect]
  3. CLOZAPINE [Suspect]
  4. CLOZAPINE [Suspect]

REACTIONS (2)
  - OBSESSIVE THOUGHTS [None]
  - SOMNOLENCE [None]
